FAERS Safety Report 12618636 (Version 1)
Quarter: 2016Q3

REPORT INFORMATION
  Report Type: Spontaneous
  Country: US (occurrence: None)
  Receive Date: 20160802
  Receipt Date: 20160802
  Transmission Date: 20161109
  Serious: Yes (Hospitalization)
  Sender: FDA-Public Use
  Company Number: None

PATIENT
  Age: 53 Year
  Sex: Female

DRUGS (1)
  1. DEPOCYT [Suspect]
     Active Substance: CYTARABINE

REACTIONS (6)
  - Headache [None]
  - Pyrexia [None]
  - Photophobia [None]
  - Nausea [None]
  - Vomiting [None]
  - Meningitis chemical [None]

NARRATIVE: CASE EVENT DATE: 20160710
